FAERS Safety Report 12712054 (Version 3)
Quarter: 2017Q1

REPORT INFORMATION
  Report Type: Report from Study
  Country: AU (occurrence: AU)
  Receive Date: 20160902
  Receipt Date: 20170217
  Transmission Date: 20170428
  Serious: Yes (Hospitalization, Other)
  Sender: FDA-Public Use
  Company Number: AU-REGENERON PHARMACEUTICALS, INC.-2016-17185

PATIENT

DRUGS (2)
  1. EYLEA [Suspect]
     Active Substance: AFLIBERCEPT
     Dosage: HAD RIGHT EYE INJECTION AND WILL NOW LEAVE X 11 WEEKS THEN REVIEW BY OPHTHALMOLOGIST
     Dates: start: 201701, end: 201701
  2. EYLEA [Suspect]
     Active Substance: AFLIBERCEPT
     Indication: NEOVASCULAR AGE-RELATED MACULAR DEGENERATION
     Dosage: 2 MG, Q8WK
     Route: 031
     Dates: start: 20141106

REACTIONS (11)
  - Plasma cell myeloma [Unknown]
  - Lymphoma [Unknown]
  - Dysphagia [Unknown]
  - Product use issue [Unknown]
  - Malaise [Not Recovered/Not Resolved]
  - Globulins increased [Unknown]
  - Headache [Unknown]
  - Neck pain [Unknown]
  - Neoplasm progression [Unknown]
  - Cataract [Unknown]
  - Product use issue [Unknown]

NARRATIVE: CASE EVENT DATE: 20141106
